FAERS Safety Report 19447062 (Version 1)
Quarter: 2021Q2

REPORT INFORMATION
  Report Type: Spontaneous
  Country: US (occurrence: US)
  Receive Date: 20210622
  Receipt Date: 20210622
  Transmission Date: 20210717
  Serious: No
  Sender: FDA-Public Use
  Company Number: US-HIKMA PHARMACEUTICALS USA INC.-US-H14001-21-01989

PATIENT
  Sex: Male

DRUGS (4)
  1. FLUTICASONE. [Suspect]
     Active Substance: FLUTICASONE
     Indication: SNEEZING
  2. ZYRTEC [Concomitant]
     Active Substance: CETIRIZINE HYDROCHLORIDE
     Indication: PRODUCT USED FOR UNKNOWN INDICATION
  3. FLUTICASONE. [Suspect]
     Active Substance: FLUTICASONE
     Indication: EYE PRURITUS
     Route: 045
     Dates: start: 202104, end: 20210413
  4. FLUTICASONE. [Suspect]
     Active Substance: FLUTICASONE
     Indication: NASAL PRURITUS

REACTIONS (1)
  - Nasal inflammation [Not Recovered/Not Resolved]

NARRATIVE: CASE EVENT DATE: 20210413
